FAERS Safety Report 7829380-1 (Version None)
Quarter: 2011Q4

REPORT INFORMATION
  Report Type: 
  Country: None (occurrence: None)
  Receive Date: 20111020
  Receipt Date: 20111010
  Transmission Date: 20120403
  Serious: Yes (Hospitalization)
  Sender: FDA-Public Use
  Company Number: US-SANOFI-AVENTIS-2011SA067672

PATIENT
  Age: 68 Year
  Sex: Female

DRUGS (5)
  1. LANTUS [Suspect]
     Dosage: DOSE:42 UNIT(S)
     Route: 058
  2. SOLOSTAR [Suspect]
  3. METFORMIN HCL [Concomitant]
  4. LANTUS [Suspect]
     Dosage: DOSE:42 UNIT(S)
     Route: 058
  5. SOLOSTAR [Suspect]

REACTIONS (1)
  - DIVERTICULITIS [None]
